FAERS Safety Report 18633207 (Version 1)
Quarter: 2020Q4

REPORT INFORMATION
  Report Type: Spontaneous
  Country: US (occurrence: US)
  Receive Date: 20201218
  Receipt Date: 20201218
  Transmission Date: 20210114
  Serious: No
  Sender: FDA-Public Use
  Company Number: US-REGENERON PHARMACEUTICALS, INC.-2019-75729

PATIENT

DRUGS (1)
  1. EYLEA [Suspect]
     Active Substance: AFLIBERCEPT
     Indication: RETINAL DEGENERATION
     Dosage: UNK
     Dates: start: 2018

REACTIONS (3)
  - Impaired driving ability [Unknown]
  - Off label use [Unknown]
  - Visual impairment [Unknown]
